FAERS Safety Report 6199314-7 (Version None)
Quarter: 2009Q2

REPORT INFORMATION
  Report Type: 
  Country: None (occurrence: None)
  Receive Date: 20090522
  Receipt Date: 20090512
  Transmission Date: 20091009
  Serious: Yes (Death, Hospitalization)
  Sender: FDA-Public Use
  Company Number: DE-CELGENEUS-062-21880-09051078

PATIENT
  Sex: Male

DRUGS (6)
  1. REVLIMID [Suspect]
     Indication: PLASMACYTOMA
     Route: 048
     Dates: start: 20080701
  2. DEXAMETHASONE 4MG TAB [Concomitant]
     Indication: PLASMACYTOMA
     Route: 065
     Dates: start: 20080701
  3. PREGABALIN [Concomitant]
     Indication: DRUG USE FOR UNKNOWN INDICATION
     Route: 065
     Dates: start: 20080701
  4. PREGABALIN [Concomitant]
     Route: 065
     Dates: start: 20080701
  5. DIFLUCAN [Concomitant]
     Indication: DRUG USE FOR UNKNOWN INDICATION
     Route: 048
     Dates: start: 20080701
  6. NULYTELY [Concomitant]
     Indication: DRUG USE FOR UNKNOWN INDICATION
     Dosage: SACHET
     Route: 048
     Dates: start: 20080701

REACTIONS (1)
  - OESOPHAGEAL CANDIDIASIS [None]
